FAERS Safety Report 8601590-5 (Version None)
Quarter: 2012Q3

REPORT INFORMATION
  Report Type: 
  Country: None (occurrence: None)
  Receive Date: 20120817
  Receipt Date: 20111209
  Transmission Date: 20120928
  Serious: Yes (Hospitalization, Other)
  Sender: FDA-Public Use
  Company Number: US-BRISTOL-MYERS SQUIBB COMPANY-16283046

PATIENT
  Age: 58 Year
  Sex: Male

DRUGS (4)
  1. PREVACID [Concomitant]
     Dosage: MORNING AND NIGHT
  2. LASIX [Concomitant]
     Dosage: 20 MG A DAY AND THEN INCREASED TO 40 MG A DAY BEGINNING 12/5/11
  3. SPRYCEL [Suspect]
     Indication: CHRONIC MYELOID LEUKAEMIA
     Dosage: IN AFTERNOONS
     Dates: start: 20110901
  4. POTASSIUM [Concomitant]

REACTIONS (10)
  - WEIGHT INCREASED [None]
  - PERICARDIAL EFFUSION [None]
  - CONSTIPATION [None]
  - VOMITING [None]
  - NAUSEA [None]
  - ABDOMINAL DISTENSION [None]
  - ABDOMINAL DISCOMFORT [None]
  - PLEURAL EFFUSION [None]
  - CARDIAC FAILURE CONGESTIVE [None]
  - GASTROOESOPHAGEAL REFLUX DISEASE [None]
